FAERS Safety Report 6756797-9 (Version None)
Quarter: 2010Q2

REPORT INFORMATION
  Report Type: 
  Country: None (occurrence: None)
  Receive Date: 20100604
  Receipt Date: 20100531
  Transmission Date: 20101027
  Serious: Yes (Death, Hospitalization, Other)
  Sender: FDA-Public Use
  Company Number: IN-ELI_LILLY_AND_COMPANY-IN201006000557

PATIENT
  Age: 60 Year
  Sex: Female

DRUGS (1)
  1. XIGRIS [Suspect]
     Indication: SEPTIC SHOCK
     Dosage: 4 D/F, UNKNOWN
     Route: 065
     Dates: start: 20100519

REACTIONS (3)
  - COAGULATION TEST ABNORMAL [None]
  - DEATH [None]
  - PLATELET COUNT DECREASED [None]
